FAERS Safety Report 18466474 (Version 2)
Quarter: 2022Q1

REPORT INFORMATION
  Report Type: Spontaneous
  Country: FR (occurrence: FR)
  Receive Date: 20201104
  Receipt Date: 20220105
  Transmission Date: 20220423
  Serious: No
  Sender: FDA-Public Use
  Company Number: None

PATIENT
  Age: 65 Year
  Sex: Female

DRUGS (1)
  1. KEYTRUDA [Suspect]
     Active Substance: PEMBROLIZUMAB
     Indication: Nodular lymphocyte predominant Hodgkin lymphoma
     Dosage: 1 DOSAGE FORM, 1 CYCLICAL, FORMULATION REPORTED AS POWDER FOR CONCENTRATE FOR SOLUTION FOR INFUSION
     Route: 041
     Dates: start: 20170915

REACTIONS (1)
  - Cortisol decreased [Not Recovered/Not Resolved]

NARRATIVE: CASE EVENT DATE: 20200924
